FAERS Safety Report 4364947-7 (Version None)
Quarter: 2004Q2

REPORT INFORMATION
  Report Type: 
  Country: None (occurrence: None)
  Receive Date: 20040521
  Receipt Date: 20040512
  Transmission Date: 20050107
  Serious: Yes (Other)
  Sender: FDA-Public Use
  Company Number: 2004-05-0587

PATIENT
  Age: 45 Year
  Sex: Male

DRUGS (2)
  1. PEG-INTRON [Suspect]
     Indication: HEPATITIS C
     Dates: start: 20030501
  2. REBETOL [Suspect]
     Indication: HEPATITIS C
     Dates: start: 20030501

REACTIONS (3)
  - BLINDNESS [None]
  - OPTIC NEUROPATHY [None]
  - RETINOPATHY [None]
